FAERS Safety Report 16163366 (Version 1)
Quarter: 2019Q2

REPORT INFORMATION
  Report Type: Spontaneous
  Country: US (occurrence: US)
  Receive Date: 20190304
  Receipt Date: 20190304
  Transmission Date: 20190711
  Serious: No
  Sender: FDA-Public Use
  Company Number: None

PATIENT
  Age: 42 Year
  Sex: Female

DRUGS (5)
  1. METOCARBONAL [Concomitant]
  2. MORPHINE [Concomitant]
     Active Substance: MORPHINE
  3. CYMBALTA [Concomitant]
     Active Substance: DULOXETINE HYDROCHLORIDE
  4. DEXTROAMPHET SACCHARAT, AMPHET ASPARTATE, DEXTROAMPHET SULFATE AND AMPHET SULFAT [Suspect]
     Active Substance: AMPHETAMINE ASPARTATE\AMPHETAMINE SULFATE\DEXTROAMPHETAMINE SACCHARATE\DEXTROAMPHETAMINE SULFATE
     Indication: ATTENTION DEFICIT/HYPERACTIVITY DISORDER
     Dosage: ?          QUANTITY:2 TABLET(S);?
     Route: 048
     Dates: start: 20190129, end: 20190304
  5. SETOQUEL [Concomitant]

REACTIONS (10)
  - Fatigue [None]
  - Influenza like illness [None]
  - Anxiety [None]
  - Nausea [None]
  - Depression [None]
  - Pain [None]
  - Product substitution issue [None]
  - Disturbance in attention [None]
  - Mental impairment [None]
  - Agitation [None]

NARRATIVE: CASE EVENT DATE: 20190129
